FAERS Safety Report 25331723 (Version 1)
Quarter: 2025Q2

REPORT INFORMATION
  Report Type: Spontaneous
  Country: US (occurrence: None)
  Receive Date: 20250519
  Receipt Date: 20250519
  Transmission Date: 20250716
  Serious: Yes (Other)
  Sender: FDA-CTU
  Company Number: None

PATIENT
  Age: 69 Year
  Sex: Male
  Weight: 91.1 kg

DRUGS (1)
  1. IOHEXOL [Suspect]
     Active Substance: IOHEXOL

REACTIONS (4)
  - Nausea [None]
  - Presyncope [None]
  - Unresponsive to stimuli [None]
  - Cyanosis [None]

NARRATIVE: CASE EVENT DATE: 20250514
